FAERS Safety Report 25008670 (Version 1)
Quarter: 2025Q1

REPORT INFORMATION
  Report Type: Spontaneous
  Country: ES (occurrence: ES)
  Receive Date: 20250225
  Receipt Date: 20250225
  Transmission Date: 20250409
  Serious: Yes (Hospitalization, Other)
  Sender: AUROBINDO
  Company Number: ES-AEMPS-1630456

PATIENT
  Age: 63 Year
  Sex: Male

DRUGS (7)
  1. CARBOPLATIN [Suspect]
     Active Substance: CARBOPLATIN
     Indication: Lung adenocarcinoma stage IV
     Route: 042
     Dates: start: 20231121, end: 20231215
  2. ZOLPIDEM TARTRATE [Concomitant]
     Active Substance: ZOLPIDEM TARTRATE
     Indication: Anxiety
     Route: 048
     Dates: start: 20130318
  3. CODEINE PHOSPHATE [Concomitant]
     Active Substance: CODEINE PHOSPHATE
     Indication: Chest pain
     Route: 048
     Dates: start: 20231113
  4. PANTOPRAZOL CINFA [Concomitant]
     Indication: Myocardial ischaemia
     Route: 048
     Dates: start: 20221202
  5. Trinomia [Concomitant]
     Indication: Myocardial ischaemia
     Route: 048
     Dates: start: 20221201
  6. BISOPROLOL FUMARATE [Concomitant]
     Active Substance: BISOPROLOL FUMARATE
     Indication: Myocardial ischaemia
     Route: 048
     Dates: start: 20221201
  7. ZOLICO [Concomitant]
     Indication: Neoplasm malignant
     Route: 048
     Dates: start: 20231116

REACTIONS (1)
  - Febrile neutropenia [Recovered/Resolved]

NARRATIVE: CASE EVENT DATE: 20231225
